FAERS Safety Report 6573953-3 (Version None)
Quarter: 2010Q1

REPORT INFORMATION
  Report Type: 
  Country: None (occurrence: None)
  Receive Date: 20100201
  Receipt Date: 20100116
  Transmission Date: 20100710
  Serious: Yes (Disabling)
  Sender: FDA-Public Use
  Company Number: 08-AUR-04070

PATIENT
  Age: 79 Year
  Sex: Female
  Weight: 60 kg

DRUGS (7)
  1. CEPHALEXIN [Suspect]
     Indication: LOWER RESPIRATORY TRACT INFECTION
     Dosage: 250MG, ORAL
     Route: 048
     Dates: start: 20080425, end: 20080504
  2. CODEINE SULFATE [Concomitant]
  3. CO-AMILOFRUSE [Concomitant]
  4. IRBESARTAN [Concomitant]
  5. PHENYTOIN [Concomitant]
  6. SIMVASTATIN [Concomitant]
  7. WARFARIN SODIUM [Concomitant]

REACTIONS (2)
  - BLISTER [None]
  - PRURITUS [None]
